FAERS Safety Report 6688431-0 (Version None)
Quarter: 2010Q2

REPORT INFORMATION
  Report Type: 
  Country: None (occurrence: None)
  Receive Date: 20100420
  Receipt Date: 20100412
  Transmission Date: 20101027
  Serious: Yes (Other)
  Sender: FDA-Public Use
  Company Number: US-ASTRAZENECA-2007UW16551

PATIENT
  Age: 21549 Day
  Sex: Male

DRUGS (9)
  1. SEROQUEL [Suspect]
     Route: 048
     Dates: start: 20040430
  2. TRAZODONE [Concomitant]
     Dates: start: 20040314
  3. RISPERDAL [Concomitant]
     Dates: start: 20040402
  4. AMBIEN [Concomitant]
     Dates: start: 20040308
  5. DIAZEPAM [Concomitant]
     Dates: start: 20040307
  6. ALPRAZOLAM [Concomitant]
     Dates: start: 20040903
  7. INDERAL LA [Concomitant]
     Dates: start: 20050721
  8. LEXAPRO [Concomitant]
     Dates: start: 20050802
  9. AMITRIPTYLINE [Concomitant]
     Dates: start: 20050929

REACTIONS (2)
  - DIABETIC NEUROPATHY [None]
  - TYPE 2 DIABETES MELLITUS [None]
